FAERS Safety Report 6607819-7 (Version None)
Quarter: 2010Q1

REPORT INFORMATION
  Report Type: 
  Country: None (occurrence: None)
  Receive Date: 20100225
  Receipt Date: 20100225
  Transmission Date: 20100710
  Serious: Yes (Other)
  Sender: FDA-Public Use
  Company Number: None

PATIENT
  Age: 19 Year
  Sex: Male
  Weight: 81.6475 kg

DRUGS (1)
  1. LEVSIN (HYOSCYAMINE) [Suspect]
     Indication: IRRITABLE BOWEL SYNDROME
     Dosage: .125 MG 1 AS NEEDED ORAL
     Route: 048
     Dates: start: 20100103, end: 20100107

REACTIONS (2)
  - ARRHYTHMIA [None]
  - HEART RATE ABNORMAL [None]
